FAERS Safety Report 7486809-9 (Version None)
Quarter: 2011Q2

REPORT INFORMATION
  Report Type: 
  Country: None (occurrence: None)
  Receive Date: 20110517
  Receipt Date: 20110512
  Transmission Date: 20111010
  Serious: Yes (Hospitalization)
  Sender: FDA-Public Use
  Company Number: PHHO2007BE06414

PATIENT
  Sex: Male
  Weight: 74 kg

DRUGS (14)
  1. EVEROLIMUS [Suspect]
     Indication: RENAL TRANSPLANT
     Dosage: 1.75 MG, BID
     Route: 048
     Dates: start: 20061225
  2. ZANTAC [Concomitant]
  3. MEDROL [Concomitant]
     Indication: RENAL TRANSPLANT
     Dosage: 8 MG DAILY
     Route: 048
  4. NOBITEN [Concomitant]
  5. ALPHA [Concomitant]
  6. VALCYTE [Concomitant]
  7. AMLODIPINE BESYLATE [Concomitant]
  8. ZESTRIL [Concomitant]
  9. ASAFLOW [Concomitant]
  10. NEORAL [Suspect]
     Indication: RENAL TRANSPLANT
     Dosage: 120 MG, QD
     Route: 048
     Dates: start: 20061224
  11. MYFORTIC [Suspect]
     Indication: RENAL TRANSPLANT
     Dosage: 720 MG, BID
     Route: 048
     Dates: start: 20070301
  12. LIPITOR [Concomitant]
  13. CALCIUM CARBONATE [Concomitant]
  14. DAPSONE [Concomitant]

REACTIONS (5)
  - CHRONIC ALLOGRAFT NEPHROPATHY [None]
  - PYELOCALIECTASIS [None]
  - THROMBOSIS [None]
  - LYMPHOCELE [None]
  - KIDNEY FIBROSIS [None]
